FAERS Safety Report 4429909-X (Version None)
Quarter: 2004Q3

REPORT INFORMATION
  Report Type: 
  Country: None (occurrence: None)
  Receive Date: 20040820
  Receipt Date: 20040812
  Transmission Date: 20050211
  Serious: Yes (Life-Threatening)
  Sender: FDA-Public Use
  Company Number: US-BRISTOL-MYERS SQUIBB COMPANY-12671103

PATIENT
  Sex: Female

DRUGS (1)
  1. PLATINOL-AQ [Suspect]
     Dosage: SEVERAL COURSES
     Route: 042

REACTIONS (1)
  - RESPIRATORY ARREST [None]
